FAERS Safety Report 10723026 (Version 1)
Quarter: 2015Q1

REPORT INFORMATION
  Report Type: Spontaneous
  Country: FR (occurrence: None)
  Receive Date: 20150114
  Receipt Date: 20150114
  Transmission Date: 20150721
  Serious: Yes (Hospitalization)
  Sender: FDA-Public Use
  Company Number: 20142758

PATIENT
  Age: 75 Year
  Sex: Female

DRUGS (4)
  1. FOSAVANCE [Suspect]
     Active Substance: ALENDRONATE SODIUM\CHOLECALCIFEROL
     Dosage: 1 X 0.1429 DOSAGE FORM IN 1 WEEK, TABLET/ORAL
     Route: 048
     Dates: start: 201105, end: 20141128
  2. AROMASIN [Suspect]
     Active Substance: EXEMESTANE
     Dosage: 2010, X 25 MILLIGRAM
     Dates: start: 2010
  3. UVEDOSE (COLECALCIFEROL) (100000 IU (INTERNATIONL UNIT, ORAL SOLUTION) (COLECALCIFEROL)) [Concomitant]
     Active Substance: CHOLECALCIFEROL
  4. METOJECT (METHOTREXATE DISODIUM) [Suspect]
     Active Substance: METHOTREXATE SODIUM
     Dosage: 10 MG/ML, 1 X 15 MILLIGRAM IN 1 WEEK

REACTIONS (3)
  - Lower limb fracture [None]
  - Ankle fracture [None]
  - Foot fracture [None]

NARRATIVE: CASE EVENT DATE: 201311
